FAERS Safety Report 6860069-1 (Version None)
Quarter: 2010Q3

REPORT INFORMATION
  Report Type: 
  Country: None (occurrence: None)
  Receive Date: 20100720
  Receipt Date: 20100713
  Transmission Date: 20110219
  Serious: Yes (Death)
  Sender: FDA-Public Use
  Company Number: PT-BRISTOL-MYERS SQUIBB COMPANY-15189558

PATIENT
  Age: 84 Year
  Sex: Male

DRUGS (2)
  1. HYDROXYUREA [Suspect]
     Indication: CHRONIC MYELOMONOCYTIC LEUKAEMIA
  2. EPOGEN [Suspect]
     Indication: CHRONIC MYELOMONOCYTIC LEUKAEMIA

REACTIONS (1)
  - KAPOSI'S SARCOMA [None]
